FAERS Safety Report 5579211-8 (Version None)
Quarter: 2008Q1

REPORT INFORMATION
  Report Type: 
  Country: None (occurrence: None)
  Receive Date: 20080102
  Receipt Date: 20071221
  Transmission Date: 20080703
  Serious: Yes (Hospitalization)
  Sender: FDA-Public Use
  Company Number: B0501253A

PATIENT
  Age: 62 Year
  Sex: Female

DRUGS (2)
  1. SPEKTRAMOX [Suspect]
     Indication: DRUG USE FOR UNKNOWN INDICATION
     Dosage: 500MG PER DAY
     Route: 048
     Dates: start: 20070921
  2. URSO FALK [Concomitant]

REACTIONS (9)
  - BLOOD ALKALINE PHOSPHATASE INCREASED [None]
  - BLOOD BILIRUBIN INCREASED [None]
  - DIARRHOEA [None]
  - NAUSEA [None]
  - OCULAR ICTERUS [None]
  - ORAL PAIN [None]
  - PRURITUS [None]
  - TRANSAMINASES INCREASED [None]
  - WEIGHT DECREASED [None]
